FAERS Safety Report 8011754-X (Version None)
Quarter: 2011Q4

REPORT INFORMATION
  Report Type: 
  Country: None (occurrence: None)
  Receive Date: 20111228
  Receipt Date: 20111221
  Transmission Date: 20120403
  Serious: Yes (Hospitalization)
  Sender: FDA-Public Use
  Company Number: US-ALEXION-A201101914

PATIENT
  Sex: Female
  Weight: 441 kg

DRUGS (32)
  1. EXJADE [Concomitant]
     Dosage: 1250 MG, QD
     Route: 048
  2. LUMIGAN [Concomitant]
     Dosage: UNK
     Route: 047
  3. COLACE [Concomitant]
     Dosage: 100 MG, BID
  4. PROTONIX [Concomitant]
     Dosage: 20 MG, QD
     Route: 048
  5. TIMOLOL MALEATE [Concomitant]
     Dosage: UNK
     Route: 047
  6. GLIPIZIDE [Concomitant]
     Dosage: 2.5 MG, QD
  7. NITROGLYCERIN [Concomitant]
     Dosage: 04 MG, PRN
     Route: 060
  8. ZOLPIDEM [Concomitant]
     Dosage: 5 MG, QD
  9. PREDNISONE TAB [Concomitant]
     Dosage: 2 MG Q PM
  10. MULTI-VITAMIN [Concomitant]
     Dosage: UNK, 1 TAB QD
  11. ACETAMINOPHEN [Concomitant]
     Dosage: 650 MG, PRN
  12. ALLOPURINOL [Concomitant]
     Dosage: 300 MG, QD
     Route: 048
  13. FUROSEMIDE [Concomitant]
     Dosage: 20 MG, QD
  14. LISINOPRIL [Suspect]
     Dosage: 20 MG, QD
  15. SIMVASTATIN [Concomitant]
     Dosage: 20 MG, QD
  16. VITAMIN D [Concomitant]
     Dosage: 1000 IU, QD
  17. LACTULOSE [Concomitant]
     Indication: CONSTIPATION
     Dosage: 30 ML, BID PRN
  18. SOLIRIS [Suspect]
     Indication: PAROXYSMAL NOCTURNAL HAEMOGLOBINURIA
     Dosage: 900 MG, Q2W
     Route: 042
     Dates: start: 20071004
  19. ATENOLOL [Concomitant]
     Dosage: 25 MG, BID
  20. PREDNISONE TAB [Concomitant]
     Dosage: 20 MG, QD
  21. LATANOPROST [Concomitant]
     Dosage: 1 GTT, QD EACH EYE
  22. MECLIZINE [Concomitant]
     Indication: DIZZINESS
     Dosage: 25 MG, QID PRN
  23. ALBUTEROL SULFATE AND IPRATROPIUM BROMIDE [Concomitant]
     Dosage: 2 PUFFS Q 4 HOURS PRN
  24. ASPIRIN [Concomitant]
     Dosage: 81 MG, QD
  25. PREDNISONE TAB [Concomitant]
     Dosage: 5 MG, QD
  26. CALCIUM CARBONATE [Concomitant]
     Dosage: 500 MG, QD
  27. QUESTRAN [Concomitant]
     Dosage: 4 G, BID
  28. ARANESP [Concomitant]
     Dosage: 300 MCG Q2W
     Route: 058
  29. BRIMONIDINE TARTRATE [Concomitant]
     Dosage: UNK
     Route: 047
  30. NORVASC [Concomitant]
     Dosage: 5 MG, QD
     Route: 048
  31. MILK OF MAGNESIA TAB [Concomitant]
     Dosage: UNK, PRN
  32. OXYCODONE HCL [Concomitant]
     Dosage: 5 MG, TID PRN

REACTIONS (11)
  - BLOOD CREATININE INCREASED [None]
  - BLOOD UREA INCREASED [None]
  - DYSPNOEA [None]
  - CHEST DISCOMFORT [None]
  - TRANSFUSION [None]
  - BLOOD GLUCOSE INCREASED [None]
  - ANAEMIA [None]
  - HYPERKALAEMIA [None]
  - ANION GAP DECREASED [None]
  - BLOOD CHLORIDE DECREASED [None]
  - BLOOD CHLORIDE INCREASED [None]
